FAERS Safety Report 4848341-8 (Version None)
Quarter: 2005Q4

REPORT INFORMATION
  Report Type: 
  Country: None (occurrence: None)
  Receive Date: 20051207
  Receipt Date: 20051207
  Transmission Date: 20060501
  Serious: Yes (Hospitalization, Disabling)
  Sender: FDA-Public Use
  Company Number: None

PATIENT
  Sex: Male
  Weight: 71.6683 kg

DRUGS (1)
  1. LEVAQUIN [Suspect]
     Indication: URINARY TRACT INFECTION
     Dosage: 75 MG 1 TAB/DAY
     Dates: start: 20051014, end: 20051019

REACTIONS (5)
  - DIFFICULTY IN WALKING [None]
  - PAIN IN EXTREMITY [None]
  - STRESS [None]
  - TENDON INJURY [None]
  - TENDONITIS [None]
